FAERS Safety Report 17111601 (Version 1)
Quarter: 2019Q4

REPORT INFORMATION
  Report Type: Spontaneous
  Country: DE (occurrence: DE)
  Receive Date: 20191204
  Receipt Date: 20191204
  Transmission Date: 20200122
  Serious: Yes (Life-Threatening, Hospitalization, Other)
  Sender: FDA-Public Use
  Company Number: DE-ROCHE-2322555

PATIENT
  Sex: Female
  Weight: 49 kg

DRUGS (5)
  1. EPIRUBICIN [Concomitant]
     Active Substance: EPIRUBICIN
  2. CYCLOPHOSPHAMIDE. [Concomitant]
     Active Substance: CYCLOPHOSPHAMIDE
  3. HERCEPTIN [Suspect]
     Active Substance: TRASTUZUMAB
     Indication: PRODUCT USED FOR UNKNOWN INDICATION
     Route: 065
  4. PERJETA [Suspect]
     Active Substance: PERTUZUMAB
     Indication: PRODUCT USED FOR UNKNOWN INDICATION
     Route: 065
  5. PACLITAXEL. [Concomitant]
     Active Substance: PACLITAXEL

REACTIONS (9)
  - Pulmonary hypertension [Unknown]
  - Thrombophlebitis [Unknown]
  - Cytotoxic cardiomyopathy [Recovering/Resolving]
  - Cardiac failure [Unknown]
  - Pneumothorax [Unknown]
  - Atrial fibrillation [Unknown]
  - Haemangioma of liver [Unknown]
  - Cardiogenic shock [Recovering/Resolving]
  - Ascites [Unknown]

NARRATIVE: CASE EVENT DATE: 20190409
